FAERS Safety Report 13618541 (Version 3)
Quarter: 2017Q2

REPORT INFORMATION
  Report Type: Spontaneous
  Country: US (occurrence: US)
  Receive Date: 20170606
  Receipt Date: 20170612
  Transmission Date: 20170830
  Serious: Yes (Death, Other)
  Sender: FDA-Public Use
  Company Number: US-PFIZER INC-2017243766

PATIENT
  Age: 64 Year
  Sex: Female
  Weight: 121.54 kg

DRUGS (2)
  1. FENTANYL CITRATE. [Suspect]
     Active Substance: FENTANYL CITRATE
     Dosage: UNK (CONTINUOUS DRIP)
     Route: 041
     Dates: start: 201705, end: 20170528
  2. PRECEDEX [Suspect]
     Active Substance: DEXMEDETOMIDINE HYDROCHLORIDE
     Indication: SEDATION
     Dosage: UNK (200, CONTINUOUS DRIP FOR 6 TO 7 DAYS)
     Route: 041
     Dates: start: 201705, end: 20170528

REACTIONS (5)
  - Cardiac arrest [Unknown]
  - Respiratory failure [Fatal]
  - Contusion [Unknown]
  - Intentional product use issue [Fatal]
  - Drug prescribing error [Fatal]

NARRATIVE: CASE EVENT DATE: 201705
